FAERS Safety Report 6856826-8 (Version None)
Quarter: 2010Q3

REPORT INFORMATION
  Report Type: 
  Country: None (occurrence: None)
  Receive Date: 20100719
  Receipt Date: 20100714
  Transmission Date: 20110219
  Serious: Yes (Hospitalization)
  Sender: FDA-Public Use
  Company Number: IE-AMGEN-QUU396077

PATIENT
  Sex: Female

DRUGS (6)
  1. NEULASTA [Suspect]
     Indication: CHEMOTHERAPY
     Route: 058
     Dates: start: 20100121
  2. CYCLIZINE [Concomitant]
  3. KYTRIL [Concomitant]
  4. PROTIUM [Concomitant]
  5. DEXAMETHASONE ACETATE [Concomitant]
  6. STEMETIL [Concomitant]

REACTIONS (2)
  - INFECTION [None]
  - KIDNEY INFECTION [None]
